FAERS Safety Report 7202261-2 (Version None)
Quarter: 2010Q4

REPORT INFORMATION
  Report Type: 
  Country: None (occurrence: None)
  Receive Date: 20101229
  Receipt Date: 20101220
  Transmission Date: 20110411
  Serious: Yes (Hospitalization)
  Sender: FDA-Public Use
  Company Number: PHHO2010DE19370

PATIENT
  Sex: Male

DRUGS (5)
  1. ZOLEDRONIC ACID [Suspect]
     Indication: OSTEONECROSIS
     Dosage: UNK
  2. DASATINIB [Concomitant]
     Indication: PROSTATE CANCER
     Dosage: 70 MG, 1 DAY
     Route: 048
     Dates: start: 20101125, end: 20101130
  3. DOCETAXEL [Concomitant]
     Indication: PROSTATE CANCER
     Dosage: 120 MG, UNK
     Route: 042
     Dates: start: 20101125, end: 20101125
  4. NOVALGIN [Concomitant]
  5. OMEPRAZOLE [Concomitant]

REACTIONS (2)
  - JAW OPERATION [None]
  - OSTEONECROSIS [None]
